FAERS Safety Report 17305306 (Version 2)
Quarter: 2020Q1

REPORT INFORMATION
  Report Type: Spontaneous
  Country: US (occurrence: US)
  Receive Date: 20200123
  Receipt Date: 20200226
  Transmission Date: 20200409
  Serious: Yes (Death, Hospitalization, Other)
  Sender: FDA-Public Use
  Company Number: US-PFIZER INC-2020030049

PATIENT
  Age: 87 Year
  Sex: Male
  Weight: 81.65 kg

DRUGS (11)
  1. OXYCODONE [Suspect]
     Active Substance: OXYCODONE
     Indication: DYSPNOEA
     Dosage: UNK UNK, AS NEEDED
     Dates: start: 201912
  2. TIKOSYN [Concomitant]
     Active Substance: DOFETILIDE
     Dosage: UNK
  3. TORSEMIDE. [Concomitant]
     Active Substance: TORSEMIDE
     Dosage: UNK
  4. VYNDAQEL [Suspect]
     Active Substance: TAFAMIDIS MEGLUMINE
     Dosage: UNK
     Dates: start: 201907
  5. POTASSIUM [Concomitant]
     Active Substance: POTASSIUM
     Dosage: UNK
  6. VYNDAQEL [Suspect]
     Active Substance: TAFAMIDIS MEGLUMINE
     Indication: CARDIAC AMYLOIDOSIS
     Dosage: 80 MG, 1X/DAY (4X20MG ONCE A DAY)
     Dates: start: 201807, end: 20200112
  7. ASPIRIN 81 [Concomitant]
     Active Substance: ASPIRIN
     Dosage: 81 MG, UNK
  8. EFFEXOR [Suspect]
     Active Substance: VENLAFAXINE HYDROCHLORIDE
     Indication: MOOD ALTERED
     Dosage: UNK, 1X/DAY
     Dates: start: 20191219, end: 20200112
  9. ATIVAN [Suspect]
     Active Substance: LORAZEPAM
     Indication: DYSPNOEA
     Dosage: UNK, AS NEEDED
     Dates: start: 201912
  10. TIKOSYN [Concomitant]
     Active Substance: DOFETILIDE
     Dosage: UNK
     Dates: start: 2019, end: 2019
  11. ELIQUIS [Concomitant]
     Active Substance: APIXABAN
     Dosage: UNK
     Dates: end: 20191214

REACTIONS (5)
  - Arteriosclerosis [Fatal]
  - Hip fracture [Unknown]
  - Fall [Unknown]
  - Cardiac failure [Fatal]
  - Cardiac failure chronic [Unknown]

NARRATIVE: CASE EVENT DATE: 201811
